FAERS Safety Report 8559809-5 (Version None)
Quarter: 2012Q3

REPORT INFORMATION
  Report Type: 
  Country: None (occurrence: None)
  Receive Date: 20120802
  Receipt Date: 20120727
  Transmission Date: 20120928
  Serious: No
  Sender: FDA-Public Use
  Company Number: US-PFIZER INC-2012182841

PATIENT
  Sex: Male

DRUGS (1)
  1. IBUPROFEN (ADVIL) [Suspect]
     Indication: TOOTHACHE
     Dosage: 2 CAPLETS OF 200 MG TOGETHER ONCE
     Route: 048
     Dates: start: 20120727

REACTIONS (4)
  - OEDEMA PERIPHERAL [None]
  - LIP SWELLING [None]
  - OEDEMA MOUTH [None]
  - URTICARIA [None]
